FAERS Safety Report 10705481 (Version 3)
Quarter: 2015Q3

REPORT INFORMATION
  Report Type: Spontaneous
  Country: JP (occurrence: JP)
  Receive Date: 20150112
  Receipt Date: 20150814
  Transmission Date: 20151125
  Serious: Yes (Death)
  Sender: FDA-Public Use
  Company Number: JP-PFIZER INC-2015006764

PATIENT
  Age: 12 Month
  Sex: Female
  Weight: 8.4 kg

DRUGS (12)
  1. SANDIMMUN [Concomitant]
     Active Substance: CYCLOSPORINE
     Dosage: 12.5 MG, 2X/DAY
     Route: 042
     Dates: start: 20141218, end: 20141225
  2. METHYLPREDNISOLONE. [Concomitant]
     Active Substance: METHYLPREDNISOLONE
     Dosage: 30 MG/KG, DAILY
     Dates: start: 201412, end: 201412
  3. RECOMODULIN [Concomitant]
     Active Substance: THROMBOMODULIN ALFA
     Indication: COAGULOPATHY
     Dosage: UNK
     Dates: start: 201412
  4. DENOSINE [Concomitant]
     Active Substance: GANCICLOVIR
     Dosage: 40 MG, 2X/DAY
     Route: 042
     Dates: start: 20141214, end: 20141219
  5. DENOSINE [Concomitant]
     Active Substance: GANCICLOVIR
     Dosage: 50 MG, 1X/DAY
     Route: 042
     Dates: start: 20141220, end: 20141225
  6. GAMMAGLOBULIN [Concomitant]
     Active Substance: HUMAN IMMUNOGLOBULIN G
     Dosage: UNK
     Dates: start: 201412
  7. MICAFUNGIN [Concomitant]
     Active Substance: MICAFUNGIN
     Indication: PROPHYLAXIS
     Dosage: UNK
     Dates: start: 201412, end: 201412
  8. VFEND [Suspect]
     Active Substance: VORICONAZOLE
     Indication: INFECTION
     Dosage: 80 MG, 2X/DAY
     Route: 042
     Dates: start: 20141218, end: 20141219
  9. CICLOSPORIN [Concomitant]
     Active Substance: CYCLOSPORINE
     Dosage: UNK
     Dates: start: 20141219
  10. FRESH FROZEN PLASMA [Concomitant]
     Active Substance: HUMAN PLASMA
     Dosage: 1 DF, SINGLE
     Dates: start: 20141219, end: 20141219
  11. GANCICLOVIR. [Concomitant]
     Active Substance: GANCICLOVIR
     Dosage: 10 MG/KG, DAILY
     Dates: start: 201412
  12. VFEND [Suspect]
     Active Substance: VORICONAZOLE
     Dosage: 70 MG, 2X/DAY
     Route: 042
     Dates: start: 20141220, end: 20141225

REACTIONS (2)
  - Disease progression [Fatal]
  - Disseminated intravascular coagulation [Fatal]
